FAERS Safety Report 9182647 (Version 1)
Quarter: 2013Q1

REPORT INFORMATION
  Report Type: Spontaneous
  Country: GB (occurrence: GB)
  Receive Date: 20130322
  Receipt Date: 20130322
  Transmission Date: 20140127
  Serious: Yes (Hospitalization, Other)
  Sender: FDA-Public Use
  Company Number: GB-PFIZER INC-2012059166

PATIENT
  Age: 55 Year
  Sex: Female
  Weight: 146 kg

DRUGS (9)
  1. EFEXOR [Suspect]
     Indication: DEPRESSION
     Dosage: 225 MG, UNK
  2. EFEXOR XL [Suspect]
     Indication: DEPRESSION
     Dosage: 1X75MG, UNK
     Route: 048
     Dates: start: 20120109, end: 20120207
  3. EFEXOR XL [Suspect]
     Dosage: 225 MG (3X75MG CAPSULES), UNK
     Route: 048
     Dates: start: 20120208
  4. FLUOXETINE HCL [Suspect]
     Indication: DEPRESSION
     Dosage: 20 MG, UNK
     Route: 048
     Dates: end: 20120301
  5. IRBESARTAN [Concomitant]
     Indication: HYPERTENSION
     Dosage: 300 MG, UNK
     Route: 048
  6. BENDROFLUMETHIAZIDE [Concomitant]
     Indication: HYPERTENSION
     Dosage: 2.5 MG, UNK
     Route: 048
  7. METFORMIN [Concomitant]
     Indication: OBESITY
     Dosage: 500 MG, 2X/DAY
     Route: 048
  8. IBUPROFEN [Concomitant]
     Indication: PAIN
     Dosage: 400 MG, AS NEEDED
     Route: 048
  9. IBUPROFEN [Concomitant]
     Indication: HEADACHE

REACTIONS (2)
  - Menorrhagia [Recovered/Resolved with Sequelae]
  - Hyperplasia [Unknown]
